FAERS Safety Report 4722878-4 (Version None)
Quarter: 2005Q3

REPORT INFORMATION
  Report Type: 
  Country: None (occurrence: None)
  Receive Date: 20050722
  Receipt Date: 20050713
  Transmission Date: 20060218
  Serious: Yes (Death, Life-Threatening, Hospitalization)
  Sender: FDA-Public Use
  Company Number: PHHO2005US11154

PATIENT
  Age: 52 Year
  Sex: Male
  Weight: 76 kg

DRUGS (10)
  1. PTK 787A [Suspect]
     Indication: NON-SMALL CELL LUNG CANCER
     Dosage: 750 MG, QD
     Route: 048
     Dates: start: 20050518, end: 20050703
  2. LIDODERM [Concomitant]
  3. LACTULOSE [Concomitant]
     Indication: CONSTIPATION
  4. DULCOLAX [Concomitant]
     Indication: CONSTIPATION
  5. COMPAZINE [Concomitant]
     Indication: NAUSEA
  6. FLOVENT [Concomitant]
  7. SYNTHROID [Concomitant]
  8. ATENOLOL [Concomitant]
     Indication: HYPERTENSION
  9. PAXIL [Concomitant]
     Indication: DEPRESSION
  10. GLEEVEC [Suspect]
     Indication: NON-SMALL CELL LUNG CANCER
     Dosage: 400 MG, QD
     Route: 048
     Dates: start: 20050601, end: 20050703

REACTIONS (6)
  - ACUTE MYOCARDIAL INFARCTION [None]
  - CARDIO-RESPIRATORY ARREST [None]
  - CHEST PAIN [None]
  - DEATH [None]
  - HYPOXIC ENCEPHALOPATHY [None]
  - RESPIRATORY ARREST [None]
